FAERS Safety Report 8212247-7 (Version None)
Quarter: 2012Q1

REPORT INFORMATION
  Report Type: 
  Country: None (occurrence: None)
  Receive Date: 20120315
  Receipt Date: 20120308
  Transmission Date: 20120608
  Serious: Yes (Other)
  Sender: FDA-Public Use
  Company Number: AU-JNJFOC-20120304938

PATIENT

DRUGS (5)
  1. ACETAMINOPHEN [Suspect]
     Indication: INFLUENZA LIKE ILLNESS
     Route: 048
  2. ZOLEDRONOC ACID [Suspect]
     Indication: OSTEOPOROSIS POSTMENOPAUSAL
     Route: 042
  3. CALCIUM [Concomitant]
     Indication: NUTRITIONAL SUPPORT
     Dosage: 500-1000 MG DAILY
     Route: 065
  4. ACETAMINOPHEN [Suspect]
     Route: 048
  5. VITAMIN D [Concomitant]
     Indication: NUTRITIONAL SUPPORT
     Dosage: 400-800 IU DAILY
     Route: 065

REACTIONS (1)
  - NON-CARDIAC CHEST PAIN [None]
